FAERS Safety Report 14148227 (Version 3)
Quarter: 2018Q1

REPORT INFORMATION
  Report Type: Spontaneous
  Country: MY (occurrence: MY)
  Receive Date: 20171101
  Receipt Date: 20180214
  Transmission Date: 20180508
  Serious: Yes (Life-Threatening, Other)
  Sender: FDA-Public Use
  Company Number: MY-CONCORDIA PHARMACEUTICALS INC.-E2B_00008450

PATIENT
  Age: 23 Year
  Sex: Female

DRUGS (2)
  1. PREDNISOLONE. [Suspect]
     Active Substance: PREDNISOLONE
     Indication: HYPERSENSITIVITY
     Route: 048
  2. HYDROCORTISONE. [Suspect]
     Active Substance: HYDROCORTISONE
     Indication: HYPERSENSITIVITY
     Route: 042

REACTIONS (2)
  - Condition aggravated [Unknown]
  - Anaphylactic shock [Unknown]
